FAERS Safety Report 22302000 (Version 2)
Quarter: 2023Q2

REPORT INFORMATION
  Report Type: Report from Study
  Country: CA (occurrence: CA)
  Receive Date: 20230510
  Receipt Date: 20230605
  Transmission Date: 20230721
  Serious: Yes (Other)
  Sender: FDA-Public Use
  Company Number: CA-JNJFOC-20221151003

PATIENT
  Age: 6 Decade
  Sex: Female

DRUGS (5)
  1. REMICADE [Suspect]
     Active Substance: INFLIXIMAB
     Indication: Rheumatoid arthritis
     Dosage: ON 28-NOV-2022, RECEIVED 64TH 500 MG INFLIXIMAB INFUSION AND PARTIAL MAYO SURVEY WAS COMPLETED.?EXPI
     Route: 042
     Dates: start: 20170203
  2. REMICADE [Suspect]
     Active Substance: INFLIXIMAB
     Indication: Colitis ulcerative
  3. CEFUROXIME [Suspect]
     Active Substance: CEFUROXIME
     Indication: Myringitis
     Route: 065
     Dates: end: 20221125
  4. PREDNISONE [Suspect]
     Active Substance: PREDNISONE
     Indication: Myringitis
     Route: 065
     Dates: end: 20221125
  5. PFIZER-BIONTECH COVID-19 VACCINE [Concomitant]
     Active Substance: TOZINAMERAN
     Indication: COVID-19 prophylaxis
     Dosage: 4 VACCINE
     Route: 065

REACTIONS (10)
  - Blood iron decreased [Unknown]
  - Leukaemia [Unknown]
  - Otitis media [Unknown]
  - Oral candidiasis [Unknown]
  - General physical health deterioration [Unknown]
  - Stress [Unknown]
  - Depressed mood [Unknown]
  - Gastrointestinal inflammation [Unknown]
  - Frequent bowel movements [Unknown]
  - Diarrhoea [Not Recovered/Not Resolved]

NARRATIVE: CASE EVENT DATE: 20180101
